FAERS Safety Report 18640641 (Version 2)
Quarter: 2023Q2

REPORT INFORMATION
  Report Type: Other
  Country: CA (occurrence: CA)
  Receive Date: 20201221
  Receipt Date: 20230622
  Transmission Date: 20230721
  Serious: Yes (Hospitalization, Other)
  Sender: FDA-Public Use
  Company Number: CA-CELLTRION INC.-2020CA033797

PATIENT

DRUGS (27)
  1. RITUXIMAB [Suspect]
     Active Substance: RITUXIMAB
     Indication: Rheumatoid arthritis
     Dosage: UNK
     Route: 065
  2. RITUXIMAB [Suspect]
     Active Substance: RITUXIMAB
     Dosage: UNK
     Route: 041
  3. ACTEMRA [Suspect]
     Active Substance: TOCILIZUMAB
     Indication: Product used for unknown indication
     Route: 065
  4. DILTIAZEM HYDROCHLORIDE [Suspect]
     Active Substance: DILTIAZEM HYDROCHLORIDE
     Indication: Rheumatoid arthritis
     Route: 065
  5. PREDNISONE [Suspect]
     Active Substance: PREDNISONE
     Indication: Rheumatoid arthritis
     Route: 065
  6. ARAVA [Suspect]
     Active Substance: LEFLUNOMIDE
     Indication: Product used for unknown indication
     Dosage: 10 MG, 1 EVERY 1 DAYS
     Route: 065
  7. CELEBREX [Suspect]
     Active Substance: CELECOXIB
     Indication: Rheumatoid arthritis
     Route: 065
  8. CELECOXIB [Suspect]
     Active Substance: CELECOXIB
     Indication: Rheumatoid arthritis
     Route: 065
  9. CIMZIA [Suspect]
     Active Substance: CERTOLIZUMAB PEGOL
     Indication: Rheumatoid arthritis
     Route: 058
  10. CORTISONE ACETATE [Suspect]
     Active Substance: CORTISONE ACETATE
     Indication: Rheumatoid arthritis
     Dosage: 25 MG, 1 EVERY 1 DAYS
     Route: 065
  11. CORTISONE ACETATE [Suspect]
     Active Substance: CORTISONE ACETATE
     Indication: Rheumatoid arthritis
     Route: 048
  12. DESOXIMETASONE [Suspect]
     Active Substance: DESOXIMETASONE
     Indication: Rheumatoid arthritis
     Route: 048
  13. DILTIAZEM HYDROCHLORIDE [Suspect]
     Active Substance: DILTIAZEM HYDROCHLORIDE
     Indication: Rheumatoid arthritis
     Dosage: 120 MG
     Route: 065
  14. ENBREL [Suspect]
     Active Substance: ETANERCEPT
     Indication: Rheumatoid arthritis
     Route: 058
  15. ESOMEPRAZOLE [Suspect]
     Active Substance: ESOMEPRAZOLE
     Indication: Rheumatoid arthritis
     Route: 065
  16. METHOTREXATE [Suspect]
     Active Substance: METHOTREXATE
     Indication: Rheumatoid arthritis
     Route: 048
  17. METHOTREXATE [Suspect]
     Active Substance: METHOTREXATE
     Indication: Rheumatoid arthritis
     Dosage: UNK
     Route: 037
  18. NAPROXEN [Suspect]
     Active Substance: NAPROXEN
     Indication: Rheumatoid arthritis
     Route: 065
  19. ORENCIA [Suspect]
     Active Substance: ABATACEPT
     Indication: Rheumatoid arthritis
     Route: 065
  20. PREDNISONE [Suspect]
     Active Substance: PREDNISONE
     Indication: Rheumatoid arthritis
     Dosage: 50 MG
     Route: 065
  21. PREDNISONE [Suspect]
     Active Substance: PREDNISONE
     Indication: Rheumatoid arthritis
     Dosage: 5 MG
     Route: 065
  22. SIMPONI [Suspect]
     Active Substance: GOLIMUMAB
     Indication: Rheumatoid arthritis
     Route: 058
  23. XELJANZ [Suspect]
     Active Substance: TOFACITINIB CITRATE
     Indication: Product used for unknown indication
     Dosage: 5 MG, 1 EVERY 12 HOURS
     Route: 048
  24. DILTIAZEM [Concomitant]
     Active Substance: DILTIAZEM
  25. ESOMEPRAZOLE MAGNESIUM [Concomitant]
     Active Substance: ESOMEPRAZOLE MAGNESIUM
  26. IBUPROFEN [Concomitant]
     Active Substance: IBUPROFEN
  27. RISEDRONATE SODIUM [Concomitant]
     Active Substance: RISEDRONATE SODIUM

REACTIONS (32)
  - Nephrolithiasis [Not Recovered/Not Resolved]
  - Pulmonary congestion [Not Recovered/Not Resolved]
  - Anal abscess [Not Recovered/Not Resolved]
  - Atrial fibrillation [Not Recovered/Not Resolved]
  - Kidney infection [Not Recovered/Not Resolved]
  - Foot deformity [Not Recovered/Not Resolved]
  - Foot operation [Not Recovered/Not Resolved]
  - Impaired healing [Not Recovered/Not Resolved]
  - Malaise [Not Recovered/Not Resolved]
  - Nerve injury [Not Recovered/Not Resolved]
  - Pain in extremity [Not Recovered/Not Resolved]
  - Respiratory tract congestion [Not Recovered/Not Resolved]
  - Rheumatoid nodule [Not Recovered/Not Resolved]
  - Systemic lupus erythematosus rash [Not Recovered/Not Resolved]
  - Swelling [Not Recovered/Not Resolved]
  - Tooth disorder [Not Recovered/Not Resolved]
  - Weight decreased [Not Recovered/Not Resolved]
  - Arthralgia [Not Recovered/Not Resolved]
  - Cough [Not Recovered/Not Resolved]
  - Diarrhoea [Not Recovered/Not Resolved]
  - Hypersensitivity [Not Recovered/Not Resolved]
  - Hypoaesthesia [Not Recovered/Not Resolved]
  - Infection [Not Recovered/Not Resolved]
  - Injection site reaction [Not Recovered/Not Resolved]
  - Pain [Not Recovered/Not Resolved]
  - Paraesthesia [Not Recovered/Not Resolved]
  - Rash [Not Recovered/Not Resolved]
  - Tooth infection [Not Recovered/Not Resolved]
  - Drug ineffective [Not Recovered/Not Resolved]
  - Contraindicated product administered [Not Recovered/Not Resolved]
  - Off label use [Not Recovered/Not Resolved]
  - Product dose omission issue [Not Recovered/Not Resolved]
